FAERS Safety Report 16597800 (Version 2)
Quarter: 2019Q3

REPORT INFORMATION
  Report Type: Spontaneous
  Country: US (occurrence: US)
  Receive Date: 20190719
  Receipt Date: 20190729
  Transmission Date: 20191004
  Serious: No
  Sender: FDA-Public Use
  Company Number: US-009507513-1907USA008583

PATIENT
  Sex: Female

DRUGS (1)
  1. TEMODAR [Suspect]
     Active Substance: TEMOZOLOMIDE
     Dosage: 45 MILLIGRAM, QD
     Route: 048

REACTIONS (2)
  - Product dose omission [Unknown]
  - No adverse event [Unknown]
